FAERS Safety Report 8317818-5 (Version None)
Quarter: 2012Q2

REPORT INFORMATION
  Report Type: 
  Country: None (occurrence: None)
  Receive Date: 20120427
  Receipt Date: 20120420
  Transmission Date: 20120825
  Serious: Yes (Hospitalization)
  Sender: FDA-Public Use
  Company Number: US-PFIZER INC-2012100415

PATIENT
  Age: 22 Year
  Sex: Male
  Weight: 91.9 kg

DRUGS (14)
  1. CYTARABINE [Suspect]
     Indication: ACUTE MYELOID LEUKAEMIA
     Dosage: 1000 MG/M2, CYCLIC
     Route: 042
     Dates: start: 20111215, end: 20120317
  2. VANCOMYCIN [Concomitant]
  3. VORICONAZOLE [Concomitant]
  4. MITOXANTRONE HYDROCHLORIDE [Suspect]
     Indication: ACUTE MYELOID LEUKAEMIA
     Dosage: 12 MG/M2, CYCLIC
     Route: 042
     Dates: start: 20111215
  5. ZYVOX [Suspect]
     Indication: PRODUCT USED FOR UNKNOWN INDICATION
  6. VELCADE [Suspect]
     Indication: ACUTE MYELOID LEUKAEMIA
     Dosage: IV BOLUS
     Dates: start: 20111215, end: 20120320
  7. FLAGYL [Concomitant]
  8. MICAFUNGIN [Concomitant]
  9. ACYCLOVIR [Concomitant]
  10. NEUPOGEN [Concomitant]
  11. ZOSYN [Concomitant]
  12. ETOPOSIDE [Suspect]
     Indication: ACUTE MYELOID LEUKAEMIA
     Dosage: 100 MG/M2, CYCLIC
     Route: 042
     Dates: start: 20111215, end: 20120317
  13. DAUNORUBICIN HCL [Suspect]
     Indication: ACUTE MYELOID LEUKAEMIA
     Dosage: 50 MG/M2, CYCLIC
     Route: 042
     Dates: start: 20111215
  14. DAPTOMYCIN [Concomitant]

REACTIONS (7)
  - WHITE BLOOD CELL COUNT DECREASED [None]
  - NEUTROPHIL COUNT DECREASED [None]
  - NO THERAPEUTIC RESPONSE [None]
  - CONDITION AGGRAVATED [None]
  - RETINAL HAEMORRHAGE [None]
  - THROMBOCYTOPENIA [None]
  - VISUAL IMPAIRMENT [None]
